FAERS Safety Report 8491516-X (Version None)
Quarter: 2012Q3

REPORT INFORMATION
  Report Type: 
  Country: None (occurrence: None)
  Receive Date: 20120706
  Receipt Date: 20120627
  Transmission Date: 20120928
  Serious: Yes (Hospitalization)
  Sender: FDA-Public Use
  Company Number: ES-JNJFOC-20120700212

PATIENT
  Age: 10 Year
  Sex: Female

DRUGS (6)
  1. REMICADE [Suspect]
     Indication: JUVENILE ARTHRITIS
     Dosage: DOSE REPORTED AS '3' (UNITS NOT PROVIDED)
     Route: 042
     Dates: start: 20020827
  2. REMICADE [Suspect]
     Dosage: DOSE REPORTED AS '3' (UNITS NOT PROVIDED); 6TH INFUSION
     Route: 042
     Dates: start: 20030326
  3. CALCIUM WITH VITAMIN D [Concomitant]
  4. ACETAMINOPHEN [Concomitant]
  5. FOLIC ACID [Concomitant]
  6. RANITIDINE [Concomitant]

REACTIONS (2)
  - INFUSION RELATED REACTION [None]
  - ANAPHYLACTIC SHOCK [None]
